FAERS Safety Report 6136331-7 (Version None)
Quarter: 2009Q1

REPORT INFORMATION
  Report Type: 
  Country: None (occurrence: None)
  Receive Date: 20090330
  Receipt Date: 20090319
  Transmission Date: 20090719
  Serious: Yes (Hospitalization)
  Sender: FDA-Public Use
  Company Number: GB-AMGEN-UK200587

PATIENT
  Sex: Male

DRUGS (5)
  1. PANITUMUMAB [Suspect]
     Indication: COLORECTAL CANCER
     Route: 041
     Dates: start: 20061030, end: 20061030
  2. IRINOTECAN HCL [Concomitant]
     Route: 041
     Dates: start: 20061030
  3. LEUCOVORIN CALCIUM [Concomitant]
     Route: 041
     Dates: start: 20061030
  4. FLUOROURACIL [Concomitant]
     Route: 040
     Dates: start: 20061030
  5. CLINDAMYCIN HCL [Concomitant]
     Route: 065
     Dates: start: 20061101

REACTIONS (2)
  - ABDOMINAL ABSCESS [None]
  - DEHYDRATION [None]
